FAERS Safety Report 5474002-0 (Version None)
Quarter: 2007Q3

REPORT INFORMATION
  Report Type: 
  Country: None (occurrence: None)
  Receive Date: 20070830
  Receipt Date: 20070622
  Transmission Date: 20080115
  Serious: Yes (Other)
  Sender: FDA-Public Use
  Company Number: 243116

PATIENT
  Age: 56 Year
  Sex: Male
  Weight: 72.6 kg

DRUGS (11)
  1. XOLAIR [Suspect]
     Indication: ASTHMA
     Dosage: 300 MG, Q2W, SUBCUTANEOUS
     Route: 058
     Dates: start: 20050902, end: 20070601
  2. ADVAIR DISKUS 100/50 [Concomitant]
  3. SINGULAIR [Concomitant]
  4. PULMICORT [Concomitant]
  5. TRIAMCINOLON (TRIAMCINOLONE) [Concomitant]
  6. ALBUTEROL NEBULIZER (ALBUTEROL/ALBUTEROL SULFATE) [Concomitant]
  7. SYNTHROID [Concomitant]
  8. TEGRETOL [Concomitant]
  9. ALLERGY IMMUNOTHERAPY (ALLERGENIC EXTRACTS) [Concomitant]
  10. ALBUTEROL (ALBUTEROL/ALBUTEROL SULFATE) [Concomitant]
  11. ULTRACET (ACETAMINOPHEN, TRAMADOL HYDROCHLORIDE) [Concomitant]

REACTIONS (1)
  - PAPILLARY THYROID CANCER [None]
